FAERS Safety Report 7932198-2 (Version None)
Quarter: 2011Q4

REPORT INFORMATION
  Report Type: 
  Country: None (occurrence: None)
  Receive Date: 20111121
  Receipt Date: 20101020
  Transmission Date: 20120403
  Serious: Yes (Other)
  Sender: FDA-Public Use
  Company Number: US-AMGEN-USASP2010001311

PATIENT
  Sex: Female

DRUGS (1)
  1. VECTIBIX [Suspect]

REACTIONS (1)
  - NEOPLASM MALIGNANT [None]
